FAERS Safety Report 5404360-4 (Version None)
Quarter: 2007Q3

REPORT INFORMATION
  Report Type: 
  Country: None (occurrence: None)
  Receive Date: 20070711
  Receipt Date: 20060731
  Transmission Date: 20080115
  Serious: Yes (Hospitalization, Other)
  Sender: FDA-Public Use
  Company Number: 250513

PATIENT
  Age: 58 Year
  Sex: Female
  Weight: 53.5 kg

DRUGS (17)
  1. ACTIVELLA [Suspect]
     Indication: MENOPAUSAL SYMPTOMS
     Dosage: 84 TAB
     Dates: start: 20010808, end: 20030724
  2. PROVERA [Suspect]
     Indication: HORMONE REPLACEMENT THERAPY
     Dosage: 10 MG
     Dates: start: 19970101, end: 19980101
  3. PREMPRO [Suspect]
     Indication: HORMONE REPLACEMENT THERAPY
     Dosage: 0.625 MG/2.5 MG
     Dates: start: 19900316, end: 19910318
  4. PREMPRO [Suspect]
     Indication: HORMONE REPLACEMENT THERAPY
     Dosage: 0.625 MG/2.5 MG
     Dates: start: 20000301, end: 20000501
  5. MEDROXYPROGESTERONE [Suspect]
     Indication: MENOPAUSAL SYMPTOMS
     Dosage: 2.5 MG
     Dates: start: 19980122, end: 19980122
  6. PREMPHASE (PREMARIN;CYCRIN 14/14) [Suspect]
     Indication: HORMONE REPLACEMENT THERAPY
     Dates: start: 20000914, end: 20010326
  7. PREMARIN [Suspect]
     Indication: HORMONE REPLACEMENT THERAPY
     Dosage: 0.625 MG
     Dates: start: 19970101, end: 19980713
  8. OGEN [Suspect]
     Indication: HORMONE REPLACEMENT THERAPY
     Dosage: 1.25 MG
     Dates: start: 19900316, end: 19910318
  9. IBUPOROFEN (IBUPROFEN) [Concomitant]
  10. METHYLPREDNISOLONE [Concomitant]
  11. PREDNISONE TAB [Concomitant]
  12. FOLIC ACID [Concomitant]
  13. METHOTREXATE [Concomitant]
  14. VOLTAREN [Concomitant]
  15. VIOXX [Concomitant]
  16. EFFEXOR XR [Concomitant]
  17. GLUCOSAMINE (GLUCOSAMINE) [Concomitant]

REACTIONS (1)
  - BREAST CANCER [None]
